FAERS Safety Report 22035790 (Version 2)
Quarter: 2023Q2

REPORT INFORMATION
  Report Type: Spontaneous
  Country: US (occurrence: US)
  Receive Date: 20230224
  Receipt Date: 20230405
  Transmission Date: 20230722
  Serious: Yes (Hospitalization, Other)
  Sender: FDA-Public Use
  Company Number: US-PFIZER INC-202300079166

PATIENT
  Age: 76 Year
  Sex: Male
  Weight: 83.46 kg

DRUGS (1)
  1. VYNDAMAX [Suspect]
     Active Substance: TAFAMIDIS
     Indication: Cardiac amyloidosis
     Dosage: 61 MG, 1X/DAY
     Dates: start: 202212

REACTIONS (2)
  - Nephrolithiasis [Unknown]
  - Colonoscopy [Unknown]

NARRATIVE: CASE EVENT DATE: 20230130
